FAERS Safety Report 8941896 (Version 1)
Quarter: 2012Q4

REPORT INFORMATION
  Report Type: 
  Country: AT (occurrence: AT)
  Receive Date: 20121130
  Receipt Date: 20121130
  Transmission Date: 20130627
  Serious: Yes (Other)
  Sender: FDA-Public Use
  Company Number: AT-NOVOPROD-365043

PATIENT
  Sex: Male
  Weight: 95 kg

DRUGS (2)
  1. NOVONORM [Suspect]
     Indication: TYPE 2 DIABETES MELLITUS
     Dosage: 4 mg, qd
     Dates: start: 20120416, end: 20120809
  2. CRESTOR [Suspect]
     Indication: HYPERCHOLESTEROLAEMIA
     Dosage: 10 mg, qd
     Route: 065
     Dates: start: 20120822, end: 201209

REACTIONS (4)
  - Oedema peripheral [Recovered/Resolved]
  - Myalgia [Recovered/Resolved]
  - Weight increased [Recovered/Resolved]
  - Visual impairment [Recovered/Resolved]
